FAERS Safety Report 4983085-3 (Version None)
Quarter: 2006Q2

REPORT INFORMATION
  Report Type: 
  Country: None (occurrence: None)
  Receive Date: 20060419
  Receipt Date: 20060406
  Transmission Date: 20061013
  Serious: Yes (Other)
  Sender: FDA-Public Use
  Company Number: 200000513BFR

PATIENT
  Age: 35 Year
  Sex: Male
  Weight: 72 kg

DRUGS (1)
  1. VARDENAFIL [Suspect]
     Indication: ERECTILE DYSFUNCTION
     Dosage: 5 MG, TOTAL DAILY,  ORAL
     Route: 048
     Dates: start: 20000705, end: 20000916

REACTIONS (4)
  - ABDOMINAL PAIN UPPER [None]
  - GASTRIC ULCER [None]
  - RETINAL DETACHMENT [None]
  - RETINAL TEAR [None]
